FAERS Safety Report 9814424 (Version 1)
Quarter: 2014Q1

REPORT INFORMATION
  Report Type: Spontaneous
  Country: US (occurrence: US)
  Receive Date: 20140113
  Receipt Date: 20140113
  Transmission Date: 20141002
  Serious: Yes (Hospitalization)
  Sender: FDA-Public Use
  Company Number: PHEH2014US000734

PATIENT
  Sex: Female

DRUGS (7)
  1. EXJADE [Suspect]
     Indication: IRON OVERLOAD
     Dosage: 2 DF, QD
     Route: 048
  2. EXJADE [Suspect]
     Dosage: 2 DF, QD
     Route: 048
     Dates: end: 20140108
  3. HYDROCODONE [Concomitant]
     Dosage: 10.5 UKN, PRN
  4. XANAX [Concomitant]
     Dosage: 0.05 UKN, PRN
  5. ZOLOFT [Concomitant]
     Dosage: UNK UKN, QD
  6. OXYCODONE [Concomitant]
     Dosage: UNK UKN, PRN
  7. KLONOPIN [Concomitant]
     Dosage: UNK UKN, PRN

REACTIONS (6)
  - Bronchitis [Unknown]
  - Pain [Unknown]
  - Gastric disorder [Unknown]
  - Abdominal distension [Unknown]
  - Dyspnoea [Unknown]
  - Blood iron increased [Unknown]
